FAERS Safety Report 12521498 (Version 6)
Quarter: 2017Q1

REPORT INFORMATION
  Report Type: Spontaneous
  Country: US (occurrence: US)
  Receive Date: 20160701
  Receipt Date: 20170330
  Transmission Date: 20170428
  Serious: No
  Sender: FDA-Public Use
  Company Number: US-ACTELION-A-US2016-135426

PATIENT
  Age: 69 Year
  Sex: Female
  Weight: 44.44 kg

DRUGS (2)
  1. VELETRI [Suspect]
     Active Substance: EPOPROSTENOL
     Dosage: 40 NG/KG, PER MIN
     Route: 042
     Dates: start: 20150828
  2. VELETRI [Suspect]
     Active Substance: EPOPROSTENOL
     Indication: PULMONARY HYPERTENSION
     Dosage: 44 NG/KG, PER MIN
     Route: 042

REACTIONS (14)
  - Drug administration error [Recovered/Resolved]
  - Urinary incontinence [Recovered/Resolved]
  - Hypotension [Unknown]
  - Dyspnoea [Recovered/Resolved]
  - Rash [Unknown]
  - Loss of consciousness [Recovered/Resolved]
  - Hypoaesthesia [Recovered/Resolved]
  - Drug dose omission [Recovered/Resolved]
  - Epistaxis [Unknown]
  - Anal incontinence [Recovered/Resolved]
  - Device use error [Recovered/Resolved]
  - Medication error [Recovered/Resolved]
  - Anxiety [Recovered/Resolved]
  - Syncope [Unknown]

NARRATIVE: CASE EVENT DATE: 20170315
